FAERS Safety Report 25923421 (Version 1)
Quarter: 2025Q4

REPORT INFORMATION
  Report Type: Other
  Country: EU (occurrence: EU)
  Receive Date: 20251015
  Receipt Date: 20251015
  Transmission Date: 20260118
  Serious: Yes (Hospitalization)
  Sender: ANI
  Company Number: EU-ANIPHARMA-030904

PATIENT
  Sex: Male

DRUGS (8)
  1. TEMOZOLOMIDE [Suspect]
     Active Substance: TEMOZOLOMIDE
     Indication: Neuroblastoma
     Dosage: TEMIRI REGIMEN 1 CYCLE
  2. CYCLOPHOSPHAMIDE [Suspect]
     Active Substance: CYCLOPHOSPHAMIDE
     Indication: Neuroblastoma
     Dosage: RAPID COJEC REGIMEN
  3. CISPLATIN [Concomitant]
     Active Substance: CISPLATIN
     Indication: Neuroblastoma
     Dosage: RAPID COJEC REGIMEN
  4. VINCRISTINE [Concomitant]
     Active Substance: VINCRISTINE
     Indication: Neuroblastoma
     Dosage: RAPID COJEC REGIMEN
  5. ETOPOSIDE [Concomitant]
     Active Substance: ETOPOSIDE
     Indication: Neuroblastoma
     Dosage: RAPID COJEC REGIMEN
  6. CARBOPLATIN [Concomitant]
     Active Substance: CARBOPLATIN
     Indication: Neuroblastoma
     Dosage: RAPID COJEC REGIMEN
  7. IRINOTECAN [Concomitant]
     Active Substance: IRINOTECAN
     Indication: Neuroblastoma
     Dosage: TEMIRI REGIMEN 1 CYCLE
  8. DINUTUXIMAB BETA [Concomitant]
     Active Substance: DINUTUXIMAB BETA
     Indication: Neuroblastoma
     Dosage: SIX CYCLES

REACTIONS (1)
  - Disease progression [Unknown]
